FAERS Safety Report 4643590-6 (Version None)
Quarter: 2005Q2

REPORT INFORMATION
  Report Type: 
  Country: None (occurrence: None)
  Receive Date: 20050425
  Receipt Date: 20050407
  Transmission Date: 20051028
  Serious: Yes (Other)
  Sender: FDA-Public Use
  Company Number: US-BOEHRINGER INGELHEIM PHARMACEUTICALS, INC.-2005-DE-01333GD

PATIENT

DRUGS (2)
  1. PRAMIPEXOLE [Suspect]
     Indication: BIPOLAR I DISORDER
  2. MOOD STABILIZER [Suspect]
     Indication: BIPOLAR I DISORDER

REACTIONS (1)
  - MANIA [None]
